APPROVED DRUG PRODUCT: FEXOFENADINE HYDROCHLORIDE
Active Ingredient: FEXOFENADINE HYDROCHLORIDE
Strength: 30MG
Dosage Form/Route: TABLET;ORAL
Application: A077081 | Product #002
Applicant: RISING PHARMA HOLDINGS INC
Approved: Apr 11, 2008 | RLD: No | RS: No | Type: DISCN